FAERS Safety Report 24227292 (Version 1)
Quarter: 2024Q3

REPORT INFORMATION
  Report Type: Spontaneous
  Country: CN (occurrence: CN)
  Receive Date: 20240820
  Receipt Date: 20240820
  Transmission Date: 20241017
  Serious: Yes (Hospitalization, Other)
  Sender: BEIGENE
  Company Number: CN-BEIGENE-BGN-2024-012583

PATIENT

DRUGS (5)
  1. TISLELIZUMAB [Suspect]
     Active Substance: TISLELIZUMAB
     Indication: Lung carcinoma cell type unspecified stage III
     Dosage: UNK
     Dates: start: 20240229, end: 20240514
  2. TISLELIZUMAB [Suspect]
     Active Substance: TISLELIZUMAB
     Dosage: 200 MILLIGRAM
     Route: 041
     Dates: start: 20240626
  3. IOVERSOL [Suspect]
     Active Substance: IOVERSOL
     Indication: Computerised tomogram
     Dosage: 100 MILLILITER
     Route: 041
     Dates: start: 20240626
  4. DOCETAXEL [Concomitant]
     Active Substance: DOCETAXEL\DOCETAXEL ANHYDROUS
     Indication: Lung carcinoma cell type unspecified stage III
     Dosage: UNK
     Dates: start: 20240229, end: 20240514
  5. CYCLOPHOSPHAMIDE [Concomitant]
     Active Substance: CYCLOPHOSPHAMIDE
     Indication: Lung carcinoma cell type unspecified stage III
     Dosage: UNK
     Dates: start: 20240229, end: 20240322

REACTIONS (1)
  - Erythema multiforme [Recovering/Resolving]

NARRATIVE: CASE EVENT DATE: 20240719
